FAERS Safety Report 12976709 (Version 2)
Quarter: 2017Q1

REPORT INFORMATION
  Report Type: Spontaneous
  Country: IT (occurrence: IT)
  Receive Date: 20161128
  Receipt Date: 20170131
  Transmission Date: 20170428
  Serious: Yes (Other)
  Sender: FDA-Public Use
  Company Number: PHHY2016IT158878

PATIENT
  Age: 7 Year
  Sex: Female

DRUGS (2)
  1. FOLIC ACID. [Concomitant]
     Active Substance: FOLIC ACID
     Indication: PRODUCT USED FOR UNKNOWN INDICATION
     Dosage: 5 MG, UNK
     Route: 048
  2. EXJADE [Suspect]
     Active Substance: DEFERASIROX
     Indication: THALASSAEMIA BETA
     Dosage: 875 MG, QD
     Route: 048
     Dates: start: 20160920, end: 20161007

REACTIONS (13)
  - Haemoglobin decreased [Unknown]
  - Blood bicarbonate decreased [Unknown]
  - Blood pH decreased [Unknown]
  - Aspartate aminotransferase increased [Recovered/Resolved]
  - Blood sodium decreased [Unknown]
  - Beta 2 microglobulin urine increased [Unknown]
  - Blood potassium decreased [Unknown]
  - Vomiting [Recovered/Resolved]
  - PO2 decreased [Unknown]
  - Nausea [Recovered/Resolved]
  - Blood calcium decreased [Unknown]
  - Alanine aminotransferase increased [Recovered/Resolved]
  - Creatinine renal clearance decreased [Recovered/Resolved]

NARRATIVE: CASE EVENT DATE: 20161007
